FAERS Safety Report 14298106 (Version 1)
Quarter: 2017Q4

REPORT INFORMATION
  Report Type: Spontaneous
  Country: GB (occurrence: GB)
  Receive Date: 20171218
  Receipt Date: 20171218
  Transmission Date: 20180321
  Serious: Yes (Hospitalization)
  Sender: FDA-Public Use
  Company Number: GB-TERSERA THERAPEUTICS, LLC-2037323

PATIENT
  Age: 76 Year
  Sex: Male

DRUGS (10)
  1. UNSPECIFIED HERBAL AND TRADITIONAL MEDICINE [Concomitant]
     Active Substance: HERBALS
  2. PARACETAMOL [Concomitant]
     Active Substance: ACETAMINOPHEN
  3. LOSARTAN. [Concomitant]
     Active Substance: LOSARTAN
  4. LANSOPRAZOLE. [Suspect]
     Active Substance: LANSOPRAZOLE
     Route: 048
  5. CYPROTERONE [Suspect]
     Active Substance: CYPROTERONE
     Route: 048
  6. AMITRIPTYLINE HYDROCHLORIDE. [Suspect]
     Active Substance: AMITRIPTYLINE HYDROCHLORIDE
     Route: 048
  7. GABAPENTIN. [Concomitant]
     Active Substance: GABAPENTIN
  8. DONEPEZIL. [Concomitant]
     Active Substance: DONEPEZIL
  9. ZOLADEX [Suspect]
     Active Substance: GOSERELIN ACETATE
     Indication: PROSTATE CANCER
     Route: 058
  10. DEXAMETHASONE. [Concomitant]
     Active Substance: DEXAMETHASONE

REACTIONS (2)
  - Fall [Unknown]
  - Femoral neck fracture [Recovering/Resolving]

NARRATIVE: CASE EVENT DATE: 20170927
